FAERS Safety Report 4572460-7 (Version None)
Quarter: 2005Q1

REPORT INFORMATION
  Report Type: 
  Country: None (occurrence: None)
  Receive Date: 20050207
  Receipt Date: 20041221
  Transmission Date: 20050727
  Serious: Yes (Hospitalization)
  Sender: FDA-Public Use
  Company Number: JP-ABBOTT-04P-087-0284408-00

PATIENT
  Sex: Male
  Weight: 81 kg

DRUGS (3)
  1. KLARICID [Suspect]
     Indication: SINUSITIS
     Route: 048
     Dates: start: 20041109, end: 20041206
  2. KLARICID [Suspect]
     Indication: PHARYNGITIS
     Route: 048
     Dates: start: 20041206, end: 20041207
  3. PRONASE [Concomitant]
     Indication: SINUSITIS
     Route: 048
     Dates: start: 20041101, end: 20041206

REACTIONS (11)
  - BLOOD CREATININE INCREASED [None]
  - BLOOD UREA INCREASED [None]
  - CHILLS [None]
  - DEHYDRATION [None]
  - LOCALISED OEDEMA [None]
  - OCULAR HYPERAEMIA [None]
  - PHARYNGOLARYNGEAL PAIN [None]
  - PYREXIA [None]
  - RASH [None]
  - STOMATITIS [None]
  - WHITE BLOOD CELL COUNT INCREASED [None]
